FAERS Safety Report 9450076 (Version 2)
Quarter: 2013Q3

REPORT INFORMATION
  Report Type: Spontaneous
  Country: US (occurrence: US)
  Receive Date: 20130809
  Receipt Date: 20130909
  Transmission Date: 20140515
  Serious: Yes (Other)
  Sender: FDA-Public Use
  Company Number: US-AMGEN-USASP2013019226

PATIENT
  Age: 31 Year
  Sex: Female

DRUGS (1)
  1. NPLATE [Suspect]
     Indication: IMMUNE THROMBOCYTOPENIC PURPURA
     Dosage: 205 MUG, QWK
     Route: 065
     Dates: start: 20121211, end: 20130311

REACTIONS (2)
  - Abortion spontaneous [Unknown]
  - Platelet count abnormal [Unknown]
